FAERS Safety Report 18068869 (Version 3)
Quarter: 2020Q3

REPORT INFORMATION
  Report Type: Spontaneous
  Country: US (occurrence: US)
  Receive Date: 20200724
  Receipt Date: 20200827
  Transmission Date: 20201103
  Serious: Yes (Death, Other)
  Sender: FDA-Public Use
  Company Number: US-GILEAD-2020-0485223

PATIENT
  Age: 65 Year
  Sex: Male
  Weight: 141.68 kg

DRUGS (64)
  1. REMDESIVIR. [Suspect]
     Active Substance: REMDESIVIR
     Dosage: 100 MG, QD
     Route: 042
     Dates: start: 20200719, end: 20200719
  2. KETAMINE [Concomitant]
     Active Substance: KETAMINE
     Indication: ANALGESIC THERAPY
     Dosage: 5?40 MCG/KG/MIN
     Route: 042
     Dates: start: 20200715, end: 20200718
  3. PANTOPRAZOLE [Concomitant]
     Active Substance: PANTOPRAZOLE
  4. ACETAZOLAMIDE. [Concomitant]
     Active Substance: ACETAZOLAMIDE
     Indication: ALKALOSIS
     Dosage: 500 MG
     Dates: start: 20200721, end: 20200721
  5. MEROPENEM. [Concomitant]
     Active Substance: MEROPENEM
     Indication: SEPSIS
     Dosage: 1 UNK
     Route: 042
     Dates: start: 20200720, end: 20200722
  6. SOLU?MEDROL [Concomitant]
     Active Substance: METHYLPREDNISOLONE SODIUM SUCCINATE
     Indication: ACUTE RESPIRATORY DISTRESS SYNDROME
     Dosage: 125 MG
     Dates: start: 20200714, end: 20200715
  7. VERSED [Concomitant]
     Active Substance: MIDAZOLAM HYDROCHLORIDE
     Dosage: 1?12MG/HR
     Route: 042
     Dates: start: 20200717, end: 20200722
  8. LEVOPHED [Concomitant]
     Active Substance: NOREPINEPHRINE BITARTRATE
     Dosage: 0.01?1 MCG/KG/MIN
     Route: 042
     Dates: start: 20200715, end: 20200719
  9. KCL [Concomitant]
     Active Substance: POTASSIUM CHLORIDE
     Dosage: 30 MEQ
     Route: 042
     Dates: start: 20200716, end: 20200716
  10. ZINC SULFATE. [Concomitant]
     Active Substance: ZINC SULFATE
     Indication: COVID-19
     Dosage: 220 MG
     Route: 048
     Dates: start: 20200714, end: 20200722
  11. AMIODARONE [Concomitant]
     Active Substance: AMIODARONE
     Indication: ATRIAL FIBRILLATION
     Dosage: 150 MG
     Route: 042
     Dates: start: 20200719, end: 20200719
  12. NOREPINEPHRINE. [Concomitant]
     Active Substance: NOREPINEPHRINE
  13. FUROSEMIDE. [Concomitant]
     Active Substance: FUROSEMIDE
     Indication: POLYURIA
     Dosage: 40?80 MG, IVP
     Dates: start: 20200717, end: 20200721
  14. ROBITUSSIN DM [Concomitant]
     Active Substance: DEXTROMETHORPHAN HYDROBROMIDE\GUAIFENESIN
     Indication: COUGH
     Dosage: 10 ML
     Route: 048
     Dates: start: 20200714, end: 20200721
  15. HUMALOG [Concomitant]
     Active Substance: INSULIN LISPRO
     Indication: DIABETES MELLITUS
     Dosage: 2?12 UNITS
     Route: 058
     Dates: start: 20200714, end: 20200722
  16. MAGNESIUM SULFATE. [Concomitant]
     Active Substance: MAGNESIUM SULFATE
     Dosage: 2GM X2
     Route: 042
     Dates: start: 20200719, end: 20200719
  17. MEROPENEM. [Concomitant]
     Active Substance: MEROPENEM
     Indication: PNEUMONIA
     Dosage: 1 G
     Route: 042
     Dates: start: 20200714, end: 20200714
  18. METOPROLOL. [Concomitant]
     Active Substance: METOPROLOL
     Indication: HYPERTENSION
     Dosage: 25 MG
     Route: 048
     Dates: start: 20200719, end: 20200722
  19. VERSED [Concomitant]
     Active Substance: MIDAZOLAM HYDROCHLORIDE
     Indication: ANXIETY
     Dosage: 2 MG
     Route: 040
     Dates: start: 20200714, end: 20200721
  20. MORPHINE [Concomitant]
     Active Substance: MORPHINE
     Dosage: 4 MG
     Route: 040
     Dates: start: 20200722, end: 20200722
  21. PROTONIX [Concomitant]
     Active Substance: PANTOPRAZOLE SODIUM
     Dosage: 40 MG
     Dates: start: 20200715, end: 20200722
  22. PROPOFOL. [Concomitant]
     Active Substance: PROPOFOL
     Indication: SEDATION
     Dosage: 5?80 MCG/KG/MIN
     Route: 042
     Dates: start: 20200714, end: 20200715
  23. VECURONIUM [Concomitant]
     Active Substance: VECURONIUM BROMIDE
     Dosage: 10 UNK
     Dates: start: 20200722, end: 20200722
  24. DILTIAZEM. [Concomitant]
     Active Substance: DILTIAZEM
     Indication: ATRIAL FIBRILLATION
     Dosage: 5?15MG/HR
     Route: 042
     Dates: start: 20200719, end: 20200719
  25. LORAZEPAM. [Concomitant]
     Active Substance: LORAZEPAM
     Indication: ANXIETY
     Dosage: 1 MG
     Dates: start: 20200715, end: 20200719
  26. METHYLPREDNISOLONE. [Concomitant]
     Active Substance: METHYLPREDNISOLONE
  27. ETOMIDATE. [Concomitant]
     Active Substance: ETOMIDATE
     Dosage: 20 MG
     Dates: start: 20200714, end: 20200714
  28. FENTANYL. [Concomitant]
     Active Substance: FENTANYL
     Indication: ANALGESIC THERAPY
     Dosage: 2?250 MCG/HR
     Route: 042
     Dates: start: 20200714, end: 20200722
  29. SENOKOT?S [Concomitant]
     Active Substance: DOCUSATE SODIUM\SENNOSIDES
     Dosage: 1 TAB
     Route: 048
     Dates: start: 20200714, end: 20200722
  30. SODIUM BICARBONATE. [Concomitant]
     Active Substance: SODIUM BICARBONATE
     Indication: ACIDOSIS
     Dosage: 50 MEQ
     Dates: start: 20200719, end: 20200719
  31. PLASMA [Concomitant]
     Active Substance: HUMAN PLASMA
  32. TOCILIZUMAB. [Concomitant]
     Active Substance: TOCILIZUMAB
     Indication: COVID-19
     Dosage: 400 MG
     Route: 042
     Dates: start: 20200715, end: 20200715
  33. ENOXAPARIN [Concomitant]
     Active Substance: ENOXAPARIN
     Dosage: 1 MG/KG
     Route: 058
     Dates: start: 20200720, end: 20200721
  34. ALBUMIN [Concomitant]
     Active Substance: ALBUMIN HUMAN
     Dosage: 25 G
     Route: 042
     Dates: start: 20200717, end: 20200718
  35. ALBUMIN [Concomitant]
     Active Substance: ALBUMIN HUMAN
     Dosage: 25 MG
     Route: 042
     Dates: start: 20200714, end: 20200714
  36. NIMBEX [NIMESULIDE] [Concomitant]
     Active Substance: NIMESULIDE
     Indication: PARALYSIS
     Dosage: 0.5?10 MCG/KG/MIN
     Route: 042
     Dates: start: 20200719, end: 20200721
  37. LEVEMIR [Concomitant]
     Active Substance: INSULIN DETEMIR
     Indication: DIABETES MELLITUS
     Dosage: 15 UNITS
     Route: 058
     Dates: start: 20200717, end: 20200722
  38. SOLU?MEDROL [Concomitant]
     Active Substance: METHYLPREDNISOLONE SODIUM SUCCINATE
     Dosage: 60 UNK
     Dates: start: 20200716, end: 20200722
  39. LIPITOR [Suspect]
     Active Substance: ATORVASTATIN CALCIUM
     Indication: HYPERLIPIDAEMIA
     Dosage: 20 MG
     Route: 048
     Dates: start: 20200715, end: 20200720
  40. AMIODARONE [Concomitant]
     Active Substance: AMIODARONE
     Dosage: 0.5?1 MG/MIN
     Route: 042
     Dates: start: 20200719, end: 20200720
  41. EPOPROSTENOL. [Concomitant]
     Active Substance: EPOPROSTENOL
     Indication: ACUTE RESPIRATORY DISTRESS SYNDROME
     Dosage: 160 MCG/HR NEB
     Dates: start: 20200715, end: 20200721
  42. PIPERACILLIN AND TAZOBACTAM [Concomitant]
     Active Substance: PIPERACILLIN SODIUM\TAZOBACTAM SODIUM
  43. HEPARIN [Concomitant]
     Active Substance: HEPARIN SODIUM
     Dosage: 3,000?4,000 UNITS, IVP
     Dates: start: 20200714, end: 20200715
  44. HEPARIN [Concomitant]
     Active Substance: HEPARIN SODIUM
     Dosage: 50?2500 UNITS/HR
     Route: 042
     Dates: start: 20200714, end: 20200717
  45. VECURONIUM [Concomitant]
     Active Substance: VECURONIUM BROMIDE
     Indication: ENDOTRACHEAL INTUBATION
     Dosage: 10 MG
     Dates: start: 20200719, end: 20200719
  46. ZOSYN [Suspect]
     Active Substance: PIPERACILLIN SODIUM\TAZOBACTAM SODIUM
     Indication: PNEUMONIA
     Dosage: 3.375 MG
     Route: 042
     Dates: start: 20200714, end: 20200720
  47. AZITHROMYCIN ANHYDROUS. [Concomitant]
     Active Substance: AZITHROMYCIN ANHYDROUS
     Indication: PNEUMONIA
     Dosage: 500 MG
     Route: 042
     Dates: start: 20200714, end: 20200718
  48. MIDAZOLAM. [Concomitant]
     Active Substance: MIDAZOLAM
  49. METOPROLOL. [Concomitant]
     Active Substance: METOPROLOL
     Dosage: 50 UNK
     Route: 048
     Dates: start: 20200722, end: 20200722
  50. MORPHINE [Concomitant]
     Active Substance: MORPHINE
     Dosage: 1 UNK
     Route: 040
     Dates: start: 20200722, end: 20200722
  51. MORPHINE [Concomitant]
     Active Substance: MORPHINE
     Dosage: 1?25MG/HR
     Route: 042
     Dates: start: 20200722, end: 20200722
  52. KCL [Concomitant]
     Active Substance: POTASSIUM CHLORIDE
     Dosage: 40 UNK
     Route: 042
     Dates: start: 20200719, end: 20200719
  53. POTASSIUM PHOSPHATES [Concomitant]
     Active Substance: POTASSIUM PHOSPHATE, DIBASIC\POTASSIUM PHOSPHATE, MONOBASIC
     Dosage: 15 MMOL
     Route: 042
     Dates: start: 20200718, end: 20200719
  54. SUCCINYLCHOLINE [SUXAMETHONIUM] [Concomitant]
     Active Substance: SUCCINYLCHOLINE
     Indication: ENDOTRACHEAL INTUBATION
     Dosage: 100 MG
     Dates: start: 20200714, end: 20200714
  55. ATORVASTATIN [Concomitant]
     Active Substance: ATORVASTATIN
  56. CISATRACURIUM. [Concomitant]
     Active Substance: CISATRACURIUM
  57. ASPIRIN (E.C.) [Concomitant]
     Active Substance: ASPIRIN
     Indication: CORONARY ARTERY DISEASE
     Dosage: 81 MG
     Route: 048
     Dates: start: 20200715, end: 20200719
  58. SINGULAIR [Concomitant]
     Active Substance: MONTELUKAST SODIUM
     Indication: COVID-19
     Dosage: 10 MG
     Route: 048
     Dates: start: 20200714, end: 20200721
  59. KCL [Concomitant]
     Active Substance: POTASSIUM CHLORIDE
     Dosage: 20 UNK
     Route: 042
     Dates: start: 20200716, end: 20200716
  60. REMDESIVIR. [Suspect]
     Active Substance: REMDESIVIR
     Indication: COVID-19
     Dosage: 200 MG, ONCE
     Route: 042
     Dates: start: 20200718, end: 20200718
  61. RIVAROXABAN [Concomitant]
     Active Substance: RIVAROXABAN
  62. ACETAMINOPHEN. [Concomitant]
     Active Substance: ACETAMINOPHEN
     Indication: PYREXIA
     Dosage: 1 G
     Route: 048
     Dates: start: 20200714, end: 20200714
  63. PLAVIX [Concomitant]
     Active Substance: CLOPIDOGREL BISULFATE
     Indication: CORONARY ARTERY DISEASE
     Dosage: 75 MG
     Route: 048
     Dates: start: 20200715, end: 20200721
  64. XARELTO [Concomitant]
     Active Substance: RIVAROXABAN
     Dosage: 20 MG
     Route: 048
     Dates: start: 20200717, end: 20200719

REACTIONS (8)
  - Oxygen saturation abnormal [Not Recovered/Not Resolved]
  - Blood bilirubin increased [Not Recovered/Not Resolved]
  - Subcutaneous emphysema [Not Recovered/Not Resolved]
  - Pneumothorax [Unknown]
  - Death [Fatal]
  - Blood alkaline phosphatase increased [Not Recovered/Not Resolved]
  - Pneumomediastinum [Not Recovered/Not Resolved]
  - Alanine aminotransferase increased [Not Recovered/Not Resolved]

NARRATIVE: CASE EVENT DATE: 202007
